FAERS Safety Report 8822311 (Version 1)
Quarter: 2012Q4

REPORT INFORMATION
  Report Type: 
  Country: US (occurrence: US)
  Receive Date: 20121003
  Receipt Date: 20121003
  Transmission Date: 20130627
  Serious: Yes (Hospitalization)
  Sender: FDA-Public Use
  Company Number: US-BAYER-2012-100694

PATIENT
  Age: 43 Year
  Sex: Female

DRUGS (2)
  1. YASMIN [Suspect]
  2. OCELLA [Suspect]

REACTIONS (2)
  - Deep vein thrombosis [None]
  - Pulmonary embolism [None]
